FAERS Safety Report 4962836-8 (Version None)
Quarter: 2006Q1

REPORT INFORMATION
  Report Type: 
  Country: None (occurrence: None)
  Receive Date: 20060331
  Receipt Date: 20060321
  Transmission Date: 20060701
  Serious: No
  Sender: FDA-Public Use
  Company Number: 2006-140083-NL

PATIENT
  Age: 43 Year
  Sex: Female

DRUGS (5)
  1. MIRTAZAPINE [Suspect]
     Dosage: 30 MG
  2. LEVOTHYROXYINE [Concomitant]
  3. TRAZODONE HCL [Concomitant]
  4. OXAZEPAM [Concomitant]
  5. METFORMIN [Concomitant]

REACTIONS (5)
  - FATIGUE [None]
  - HYPERGLYCAEMIA [None]
  - THIRST [None]
  - VISION BLURRED [None]
  - WEIGHT INCREASED [None]
